FAERS Safety Report 7737523-3 (Version None)
Quarter: 2011Q3

REPORT INFORMATION
  Report Type: 
  Country: None (occurrence: None)
  Receive Date: 20110902
  Receipt Date: 20110824
  Transmission Date: 20111222
  Serious: Yes (Hospitalization)
  Sender: FDA-Public Use
  Company Number: 2011MA012551

PATIENT
  Age: 66 Year
  Sex: Female

DRUGS (14)
  1. MIRTAZAPINE [Suspect]
     Indication: PARANOIA
     Dosage: 15 MG; QD
  2. PAROXETINE HCL [Concomitant]
  3. IMIPRAMINE [Concomitant]
  4. TRAZODONE HCL [Concomitant]
  5. MELOXICAM [Concomitant]
  6. MOXIFLOXACIN HCL [Suspect]
     Indication: PNEUMONIA
     Dosage: 400 MG; QD
  7. WARFARIN SODIUM [Concomitant]
  8. AMLODIPINE [Concomitant]
  9. OXYCODONE HCL [Concomitant]
  10. HALOPERIDOL [Suspect]
     Indication: PARANOIA
     Dosage: 2 MG; BID
  11. FUROSEMIDE [Concomitant]
  12. DOMPERIDONE [Concomitant]
  13. ATORVASTATIN [Concomitant]
  14. TRAMADOL HCL [Concomitant]

REACTIONS (23)
  - MOBILITY DECREASED [None]
  - WHITE BLOOD CELL COUNT INCREASED [None]
  - BLOOD MAGNESIUM DECREASED [None]
  - INTERNATIONAL NORMALISED RATIO INCREASED [None]
  - BLOOD UREA INCREASED [None]
  - BLOOD CREATINE PHOSPHOKINASE INCREASED [None]
  - DISORIENTATION [None]
  - CEREBRAL ISCHAEMIA [None]
  - BLOOD CREATININE INCREASED [None]
  - DEMYELINATION [None]
  - CIRCADIAN RHYTHM SLEEP DISORDER [None]
  - BLOOD CHLORIDE DECREASED [None]
  - ANION GAP INCREASED [None]
  - TREMOR [None]
  - BLOOD URINE PRESENT [None]
  - RESPIRATORY RATE INCREASED [None]
  - SEROTONIN SYNDROME [None]
  - CONFUSIONAL STATE [None]
  - BLOOD ALBUMIN DECREASED [None]
  - URINE KETONE BODY PRESENT [None]
  - HYPOPHAGIA [None]
  - HYPERTONIA [None]
  - BLOOD CALCIUM DECREASED [None]
